FAERS Safety Report 9365673 (Version 1)
Quarter: 2013Q2

REPORT INFORMATION
  Report Type: Spontaneous
  Country: US (occurrence: US)
  Receive Date: 20130625
  Receipt Date: 20130625
  Transmission Date: 20140414
  Serious: Yes (Other)
  Sender: FDA-Public Use
  Company Number: US-ASTRAZENECA-2013SE47108

PATIENT
  Age: 69 Year
  Sex: Male

DRUGS (1)
  1. BRILINTA [Suspect]
     Indication: ACUTE CORONARY SYNDROME
     Route: 048
     Dates: start: 20130608, end: 20130609

REACTIONS (3)
  - Myocardial infarction [Unknown]
  - Device occlusion [Unknown]
  - Intentional drug misuse [Unknown]
